FAERS Safety Report 4438074-4 (Version None)
Quarter: 2004Q3

REPORT INFORMATION
  Report Type: 
  Country: None (occurrence: None)
  Receive Date: 20040831
  Receipt Date: 20040514
  Transmission Date: 20050211
  Serious: No
  Sender: FDA-Public Use
  Company Number: US-GLAXOSMITHKLINE-A0510936A

PATIENT
  Age: 63 Year
  Sex: Female

DRUGS (2)
  1. WELLBUTRIN [Suspect]
     Dosage: 150MG PER DAY
     Route: 048
  2. CELEXA [Concomitant]

REACTIONS (1)
  - INSOMNIA [None]
